FAERS Safety Report 7401133-8 (Version None)
Quarter: 2011Q2

REPORT INFORMATION
  Report Type: 
  Country: None (occurrence: None)
  Receive Date: 20110407
  Receipt Date: 20110406
  Transmission Date: 20111010
  Serious: Yes (Other)
  Sender: FDA-Public Use
  Company Number: US-ABBOTT-11P-163-0713965-00

PATIENT
  Sex: Male
  Weight: 81.63 kg

DRUGS (12)
  1. VICODIN [Suspect]
     Indication: INSOMNIA
  2. MIDODRINE HYDROCHLORIDE [Concomitant]
     Indication: HYPERTENSION
  3. VICODIN [Interacting]
     Indication: DEPRESSION
  4. PERCOCET [Interacting]
     Indication: PRODUCT USED FOR UNKNOWN INDICATION
  5. PRILOSEC [Concomitant]
     Indication: GASTRIC DISORDER
  6. SEVELAMER CARBONATE [Concomitant]
     Indication: PRODUCT USED FOR UNKNOWN INDICATION
  7. MIDODRINE HYDROCHLORIDE [Concomitant]
  8. ROBITUSSIN [Interacting]
     Indication: RESPIRATORY TRACT CONGESTION
     Dates: start: 20110308
  9. SERTRALINE HYDROCHLORIDE [Interacting]
     Indication: INSOMNIA
  10. SERTRALINE HYDROCHLORIDE [Interacting]
     Indication: DEPRESSION
  11. PRILOSEC [Concomitant]
     Indication: ABDOMINAL DISCOMFORT
  12. CO Q-10 [Concomitant]
     Indication: PRODUCT USED FOR UNKNOWN INDICATION

REACTIONS (5)
  - MOANING [None]
  - FEELING ABNORMAL [None]
  - DRUG INTERACTION [None]
  - SOMNOLENCE [None]
  - FATIGUE [None]
